FAERS Safety Report 7434876-0 (Version None)
Quarter: 2011Q2

REPORT INFORMATION
  Report Type: 
  Country: None (occurrence: None)
  Receive Date: 20110425
  Receipt Date: 20110418
  Transmission Date: 20111010
  Serious: Yes (Death, Hospitalization, Other)
  Sender: FDA-Public Use
  Company Number: US-ROCHE-733624

PATIENT
  Age: 67 Year
  Sex: Female
  Weight: 123.9 kg

DRUGS (18)
  1. CELLCEPT [Suspect]
     Route: 048
     Dates: start: 20080711, end: 20090914
  2. HEPARIN [Concomitant]
  3. CELLCEPT [Suspect]
     Route: 048
     Dates: start: 20091112, end: 20091118
  4. CYCLOSPORINE [Suspect]
     Route: 048
     Dates: start: 20080624
  5. ISOSORBIDE DINITRATE [Concomitant]
  6. CELLCEPT [Suspect]
     Route: 048
     Dates: start: 20090915, end: 20091111
  7. METOPROLOL [Concomitant]
  8. SPIRIVA [Concomitant]
  9. VALCYTE [Concomitant]
  10. ADVAIR DISKUS 100/50 [Concomitant]
  11. HYDRALAZINE [Concomitant]
  12. PREDNISONE [Suspect]
     Route: 048
     Dates: start: 20080721, end: 20091124
  13. OMEPRAZOLE [Concomitant]
  14. FLUNISOLIDE [Concomitant]
  15. LEVOTHYROXINE SODIUM [Concomitant]
  16. SODIUM BICARBONATE [Concomitant]
  17. CYCLOSPORINE [Suspect]
     Route: 048
     Dates: start: 20080624
  18. MOXIFLOXACIN [Concomitant]
     Dates: start: 20091113

REACTIONS (7)
  - LIVER FUNCTION TEST ABNORMAL [None]
  - RENAL FAILURE ACUTE [None]
  - ATRIAL FLUTTER [None]
  - ATRIAL FIBRILLATION [None]
  - MENTAL STATUS CHANGES [None]
  - DIABETIC KETOACIDOSIS [None]
  - SEPSIS [None]
